FAERS Safety Report 20445269 (Version 1)
Quarter: 2022Q1

REPORT INFORMATION
  Report Type: Spontaneous
  Country: US (occurrence: None)
  Receive Date: 20220208
  Receipt Date: 20220208
  Transmission Date: 20220423
  Serious: Yes (Life-Threatening, Hospitalization, Other)
  Sender: FDA-Public Use
  Company Number: None

PATIENT
  Age: 64 Year
  Sex: Male

DRUGS (1)
  1. CAPECITABINE [Suspect]
     Active Substance: CAPECITABINE
     Indication: Rectal cancer
     Dosage: FREQUENCY : TWICE A DAY;?
     Route: 048
     Dates: end: 20220201

REACTIONS (5)
  - Abdominal pain upper [None]
  - Decreased appetite [None]
  - Vomiting [None]
  - Mouth ulceration [None]
  - Drug hypersensitivity [None]

NARRATIVE: CASE EVENT DATE: 20211215
